FAERS Safety Report 23760021 (Version 1)
Quarter: 2024Q2

REPORT INFORMATION
  Report Type: Spontaneous
  Country: FR (occurrence: FR)
  Receive Date: 20240419
  Receipt Date: 20240419
  Transmission Date: 20240716
  Serious: Yes (Hospitalization)
  Sender: FDA-Public Use
  Company Number: None

PATIENT
  Age: 60 Year
  Sex: Female
  Weight: 108 kg

DRUGS (27)
  1. FUROSEMIDE [Suspect]
     Active Substance: FUROSEMIDE
     Indication: Oedema
     Dates: end: 20240107
  2. LETROZOLE [Suspect]
     Active Substance: LETROZOLE
     Indication: Breast cancer
     Dates: start: 20240117
  3. LERCANIDIPINE HYDROCHLORIDE [Suspect]
     Active Substance: LERCANIDIPINE HYDROCHLORIDE
     Indication: Hypertension
  4. FEBUXOSTAT [Suspect]
     Active Substance: FEBUXOSTAT
     Indication: Hyperuricaemia
     Dates: end: 20240107
  5. SOLIFENACIN [Suspect]
     Active Substance: SOLIFENACIN
     Indication: Urinary incontinence
     Dates: end: 20240107
  6. CLODRONATE DISODIUM [Suspect]
     Active Substance: CLODRONATE DISODIUM
     Indication: Osteolysis
     Dates: end: 20240107
  7. PANTOPRAZOLE [Suspect]
     Active Substance: PANTOPRAZOLE
     Indication: Gastritis
     Dates: start: 20240119, end: 20240121
  8. PAROXETINE [Suspect]
     Active Substance: PAROXETINE
     Indication: Depression
     Dates: end: 20240107
  9. OMEPRAZOLE [Suspect]
     Active Substance: OMEPRAZOLE
     Indication: Ulcer
     Dates: end: 20240107
  10. MIRTAZAPINE [Suspect]
     Active Substance: MIRTAZAPINE
     Indication: Depression
     Dates: end: 20240107
  11. ALPRAZOLAM [Suspect]
     Active Substance: ALPRAZOLAM
     Indication: Anxiety
     Dates: end: 20240107
  12. JANUMET [Suspect]
     Active Substance: METFORMIN HYDROCHLORIDE\SITAGLIPTIN PHOSPHATE
     Indication: Type 2 diabetes mellitus
     Dosage: STRENGTH: 50 MG/1000 MG
     Dates: end: 20240207
  13. CHOLECALCIFEROL [Suspect]
     Active Substance: CHOLECALCIFEROL
     Indication: Vitamin K deficiency
     Dosage: STRENGTH: 50,000 IU;  ORAL SOLUTION IN AMPOULE
     Dates: end: 20240107
  14. SPIRONOLACTONE [Suspect]
     Active Substance: SPIRONOLACTONE
     Indication: Hypertension
     Dates: end: 20240107
  15. METOPROLOL FUMARATE [Suspect]
     Active Substance: METOPROLOL FUMARATE
     Indication: Hypertension
     Dates: end: 20240107
  16. PERINDOPRIL [Suspect]
     Active Substance: PERINDOPRIL
     Indication: Hypertension
     Dates: end: 20240107
  17. LEVOTHYROXINE [Suspect]
     Active Substance: LEVOTHYROXINE\LEVOTHYROXINE SODIUM
     Indication: Hypothyroidism
     Dosage: STRENGTH: 50 MICROGRAMS, SCORED TABLET
     Dates: start: 20240117
  18. LANSOPRAZOLE [Suspect]
     Active Substance: LANSOPRAZOLE
     Indication: Gastritis
     Dates: start: 20240110, end: 20240118
  19. LANSOPRAZOLE [Suspect]
     Active Substance: LANSOPRAZOLE
     Indication: Gastritis
     Dates: start: 20240119, end: 20240220
  20. FUROSEMIDE [Suspect]
     Active Substance: FUROSEMIDE
     Indication: Oedema
     Dates: start: 20240129
  21. FUROSEMIDE [Suspect]
     Active Substance: FUROSEMIDE
     Indication: Oedema
     Dates: start: 20240116, end: 20240128
  22. PAROXETINE [Suspect]
     Active Substance: PAROXETINE
     Indication: Depression
     Dates: end: 20240117
  23. LEVOTHYROXINE [Suspect]
     Active Substance: LEVOTHYROXINE\LEVOTHYROXINE SODIUM
     Indication: Hypothyroidism
     Dosage: STRENGTH: 50 MICROGRAMS, SCORED TABLET
     Dates: start: 20240107
  24. LEVOTHYROXINE [Suspect]
     Active Substance: LEVOTHYROXINE\LEVOTHYROXINE SODIUM
     Indication: Hypothyroidism
     Dosage: STRENGTH: 50 MICROGRAMS, SCORED TABLET
     Dates: start: 20240107
  25. LERCANIDIPINE HYDROCHLORIDE [Suspect]
     Active Substance: LERCANIDIPINE HYDROCHLORIDE
     Indication: Hypertension
     Dates: end: 20240107
  26. ALPRAZOLAM [Suspect]
     Active Substance: ALPRAZOLAM
     Indication: Anxiety
     Dates: start: 20240116
  27. LETROZOLE [Suspect]
     Active Substance: LETROZOLE
     Indication: Breast cancer
     Dates: end: 20240107

REACTIONS (2)
  - Renal tubular necrosis [Not Recovered/Not Resolved]
  - Tubulointerstitial nephritis [Not Recovered/Not Resolved]

NARRATIVE: CASE EVENT DATE: 20240107
